FAERS Safety Report 7207979-3 (Version None)
Quarter: 2011Q1

REPORT INFORMATION
  Report Type: 
  Country: None (occurrence: None)
  Receive Date: 20110104
  Receipt Date: 20101228
  Transmission Date: 20110831
  Serious: No
  Sender: FDA-Public Use
  Company Number: US-US-EMD SERONO, INC.-231374J10USA

PATIENT
  Sex: Male

DRUGS (1)
  1. REBIF [Suspect]
     Indication: MULTIPLE SCLEROSIS
     Route: 058
     Dates: start: 20090323

REACTIONS (4)
  - FATIGUE [None]
  - INJECTION SITE DISCOLOURATION [None]
  - HYPERSOMNIA [None]
  - THYROID DISORDER [None]
